FAERS Safety Report 4864499-9 (Version None)
Quarter: 2005Q4

REPORT INFORMATION
  Report Type: 
  Country: None (occurrence: None)
  Receive Date: 20051222
  Receipt Date: 20051215
  Transmission Date: 20060501
  Serious: Yes (Hospitalization, Other)
  Sender: FDA-Public Use
  Company Number: US-BRISTOL-MYERS SQUIBB COMPANY-13217963

PATIENT
  Age: 65 Year
  Sex: Male
  Weight: 91 kg

DRUGS (3)
  1. COUMADIN [Suspect]
     Indication: DEEP VEIN THROMBOSIS
  2. PROZAC [Concomitant]
  3. AMITRIPTYLINE [Concomitant]

REACTIONS (5)
  - HYPERHIDROSIS [None]
  - INTERNATIONAL NORMALISED RATIO FLUCTUATION [None]
  - LOSS OF CONSCIOUSNESS [None]
  - VASCULAR INJURY [None]
  - VOMITING [None]
